FAERS Safety Report 14618835 (Version 1)
Quarter: 2018Q1

REPORT INFORMATION
  Report Type: Spontaneous
  Country: CH (occurrence: CH)
  Receive Date: 20180309
  Receipt Date: 20180309
  Transmission Date: 20180509
  Serious: Yes (Hospitalization, Other)
  Sender: FDA-Public Use
  Company Number: CH-ALLERGAN-1812901US

PATIENT
  Age: 71 Year
  Sex: Female

DRUGS (9)
  1. CLEXANE [Concomitant]
     Active Substance: ENOXAPARIN SODIUM
     Dosage: 40 MG, QD
     Dates: start: 20180202, end: 20180207
  2. NEXIUM [Suspect]
     Active Substance: ESOMEPRAZOLE MAGNESIUM
     Indication: HELICOBACTER INFECTION
     Dosage: 40 MG, QD
     Route: 048
  3. DEMETRIN [Suspect]
     Active Substance: PRAZEPAM
     Indication: ANXIETY
     Dosage: 10 MG, QD
     Route: 048
     Dates: end: 20180201
  4. IBUPROFEN. [Suspect]
     Active Substance: IBUPROFEN
     Indication: MUSCULOSKELETAL PAIN
     Dosage: 600 MG, UNK
     Route: 048
     Dates: start: 20180111, end: 20180201
  5. TRAMAL [Suspect]
     Active Substance: TRAMADOL
     Indication: PAIN
     Dosage: 100 MG, QD
     Route: 048
     Dates: start: 201801, end: 20180201
  6. DAFALGAN [Concomitant]
     Active Substance: ACETAMINOPHEN
     Dosage: 1000 MG, QID
     Dates: start: 20180202
  7. PYLERA [Suspect]
     Active Substance: BISMUTH SUBCITRATE POTASSIUM\METRONIDAZOLE\TETRACYCLINE HYDROCHLORIDE
     Indication: HELICOBACTER INFECTION
     Dosage: 3 DF, QID
     Route: 048
     Dates: start: 20180127
  8. CITALOPRAM HYDROBROMIDE UNK [Suspect]
     Active Substance: CITALOPRAM HYDROBROMIDE
     Indication: DEPRESSED MOOD
     Dosage: UNK
     Route: 048
  9. VITAMIN D3 [Concomitant]
     Active Substance: CHOLECALCIFEROL
     Dosage: UNK UNK, SINGLE
     Dates: start: 20180205, end: 20180205

REACTIONS (11)
  - Confusional state [Recovering/Resolving]
  - Off label use [Unknown]
  - Asthenia [Unknown]
  - Limb injury [Unknown]
  - Pyrexia [Recovered/Resolved]
  - Diarrhoea [Unknown]
  - Fall [Unknown]
  - Vitamin D deficiency [Unknown]
  - Hyponatraemia [Recovered/Resolved]
  - Cerebrovascular accident [Unknown]
  - Nausea [Unknown]

NARRATIVE: CASE EVENT DATE: 20180110
